FAERS Safety Report 6143512-5 (Version None)
Quarter: 2009Q2

REPORT INFORMATION
  Report Type: 
  Country: None (occurrence: None)
  Receive Date: 20090401
  Receipt Date: 20090326
  Transmission Date: 20091009
  Serious: Yes (Other)
  Sender: FDA-Public Use
  Company Number: FABR-1000671

PATIENT
  Age: 43 Year
  Sex: Female
  Weight: 54 kg

DRUGS (5)
  1. FABRAZYME [Suspect]
     Indication: FABRY'S DISEASE
     Dosage: 55 MG, Q2W, INTRAVENOUS; 70 MG, INTRAVENOUS
     Route: 042
     Dates: start: 20081003, end: 20090219
  2. FABRAZYME [Suspect]
     Indication: FABRY'S DISEASE
     Dosage: 55 MG, Q2W, INTRAVENOUS; 70 MG, INTRAVENOUS
     Route: 042
     Dates: start: 20090220
  3. DIPHENHYDRAMINE HCL [Suspect]
     Indication: PREMEDICATION
     Dosage: 25 MG, Q2W, ORAL
     Route: 048
  4. LISINOPRIL [Concomitant]
  5. IBUPROFEN [Concomitant]

REACTIONS (10)
  - CRANIAL NERVE PARALYSIS [None]
  - DIPLOPIA [None]
  - DIZZINESS [None]
  - FALL [None]
  - FEELING HOT [None]
  - INFUSION RELATED REACTION [None]
  - MALAISE [None]
  - PRURITUS [None]
  - SYNCOPE [None]
  - VIRAL INFECTION [None]
